FAERS Safety Report 20646846 (Version 1)
Quarter: 2022Q1

REPORT INFORMATION
  Report Type: Spontaneous
  Country: US (occurrence: US)
  Receive Date: 20220329
  Receipt Date: 20220329
  Transmission Date: 20220423
  Serious: No
  Sender: FDA-Public Use
  Company Number: US-NOVARTISTESTPH-NVSC2022US070496

PATIENT
  Sex: Male

DRUGS (2)
  1. PROMACTA [Suspect]
     Active Substance: ELTROMBOPAG OLAMINE
     Indication: Anaemia of chronic disease
     Dosage: 25 MG, QD (STRENGTH OF 25 MG)
     Route: 048
     Dates: start: 202202
  2. PROMACTA [Suspect]
     Active Substance: ELTROMBOPAG OLAMINE
     Dosage: 100 MG, QD (STRENGTH OF 50 MG)
     Route: 048
     Dates: start: 202202

REACTIONS (1)
  - Diarrhoea [Unknown]
